FAERS Safety Report 18357718 (Version 2)
Quarter: 2020Q4

REPORT INFORMATION
  Report Type: Spontaneous
  Country: ES (occurrence: ES)
  Receive Date: 20201008
  Receipt Date: 20201013
  Transmission Date: 20210114
  Serious: Yes (Hospitalization, Other)
  Sender: FDA-Public Use
  Company Number: ES-AUROBINDO-AUR-APL-2020-051068

PATIENT
  Age: 47 Year
  Sex: Male

DRUGS (3)
  1. EFAVIRENZ. [Suspect]
     Active Substance: EFAVIRENZ
     Dosage: UNK
     Route: 065
  2. EFAVIRENZ. [Suspect]
     Active Substance: EFAVIRENZ
     Indication: HIV INFECTION
     Dosage: 400 MILLIGRAM, ONCE A DAY
     Route: 048
  3. METHADONE HYDROCHLORIDE. [Concomitant]
     Active Substance: METHADONE HYDROCHLORIDE
     Indication: PRODUCT USED FOR UNKNOWN INDICATION
     Dosage: 15 MILLIGRAM, ONCE A DAY
     Route: 065

REACTIONS (6)
  - Bipolar disorder [Recovered/Resolved]
  - Delirium [Recovered/Resolved]
  - Psychotic disorder [Recovered/Resolved]
  - Psychiatric decompensation [Recovered/Resolved]
  - Mania [Recovered/Resolved]
  - Psychotic symptom [Recovered/Resolved]
